FAERS Safety Report 9992885 (Version 1)
Quarter: 2014Q1

REPORT INFORMATION
  Report Type: Report from Study
  Country: US (occurrence: US)
  Receive Date: 20140310
  Receipt Date: 20140310
  Transmission Date: 20141002
  Serious: No
  Sender: FDA-Public Use
  Company Number: US-ABBVIE-13P-163-1114880-00

PATIENT
  Age: 38 Year
  Sex: Female

DRUGS (10)
  1. LUPRON DEPOT [Suspect]
     Indication: ENDOMETRIOSIS
     Dates: start: 20130630
  2. MULTIVITAMIN [Concomitant]
     Indication: PRODUCT USED FOR UNKNOWN INDICATION
     Dosage: ONCE DAILY
  3. PRILOSEC [Concomitant]
     Indication: GASTRIC PH DECREASED
  4. PRILOSEC [Concomitant]
     Indication: SURGERY
  5. PHENERGAN [Concomitant]
     Indication: NAUSEA
     Dosage: 1 TEASPOON EVERY 4 HOURS AS NEEDED
  6. PHENERGAN [Concomitant]
     Indication: VOMITING
  7. FERROUS SULFATE [Concomitant]
     Indication: PRODUCT USED FOR UNKNOWN INDICATION
  8. CIPRO [Concomitant]
     Indication: ANTIBIOTIC THERAPY
  9. CIPRO [Concomitant]
     Indication: SURGERY
  10. NORCO [Concomitant]
     Indication: PAIN
     Dosage: 5/325 MG 2 TABS EVERY 4 HOURS AS NEEDED

REACTIONS (2)
  - Cold sweat [Not Recovered/Not Resolved]
  - Hyperhidrosis [Not Recovered/Not Resolved]
